APPROVED DRUG PRODUCT: RETIN-A
Active Ingredient: TRETINOIN
Strength: 0.025%
Dosage Form/Route: CREAM;TOPICAL
Application: N019049 | Product #001 | TE Code: AB
Applicant: BAUSCH HEALTH US LLC
Approved: Sep 16, 1988 | RLD: Yes | RS: Yes | Type: RX